FAERS Safety Report 12928967 (Version 3)
Quarter: 2016Q4

REPORT INFORMATION
  Report Type: Report from Study
  Country: BR (occurrence: BR)
  Receive Date: 20161110
  Receipt Date: 20161215
  Transmission Date: 20170207
  Serious: Yes (Hospitalization, Other)
  Sender: FDA-Public Use
  Company Number: PHHY2016BR153523

PATIENT
  Sex: Female
  Weight: 70 kg

DRUGS (1)
  1. DIOVAN HCT [Suspect]
     Active Substance: HYDROCHLOROTHIAZIDE\VALSARTAN
     Indication: HYPERTENSION
     Dosage: 1 DF (HYDROCHLOROTHIAZIDE 12.5 MG, VALSARTAN 160 MG) , QD
     Route: 048
     Dates: start: 2013, end: 20161103

REACTIONS (4)
  - Cardiac disorder [Unknown]
  - Drug ineffective [Unknown]
  - Diabetes mellitus [Unknown]
  - Lung disorder [Unknown]
